FAERS Safety Report 9378325 (Version 2)
Quarter: 2013Q3

REPORT INFORMATION
  Report Type: Report from Study
  Country: US (occurrence: US)
  Receive Date: 20130701
  Receipt Date: 20130711
  Transmission Date: 20140515
  Serious: Yes (Other)
  Sender: FDA-Public Use
  Company Number: US-ABBOTT-13P-163-1109793-00

PATIENT
  Age: 48 Year
  Sex: Female

DRUGS (5)
  1. HUMIRA [Suspect]
     Indication: RHEUMATOID ARTHRITIS
  2. AMBIEN [Concomitant]
     Indication: INSOMNIA
     Dosage: AT BEDTIME AS REQUIRED
  3. SHOTS IN THE PAST [Concomitant]
     Indication: HYPERSENSITIVITY
     Dosage: WEEKLY
  4. GENERIC FLEXERIL [Concomitant]
     Indication: HEADACHE
  5. LIQUID TEARS [Concomitant]
     Indication: PRODUCT USED FOR UNKNOWN INDICATION
     Dosage: BOTH EYES

REACTIONS (5)
  - Nasal septum deviation [Recovered/Resolved]
  - Influenza like illness [Unknown]
  - Headache [Unknown]
  - Pain [Unknown]
  - Eye pain [Unknown]
